FAERS Safety Report 19660158 (Version 1)
Quarter: 2021Q3

REPORT INFORMATION
  Report Type: Spontaneous
  Country: JP (occurrence: JP)
  Receive Date: 20210805
  Receipt Date: 20210805
  Transmission Date: 20211014
  Serious: Yes (Hospitalization, Other)
  Sender: FDA-Public Use
  Company Number: JP-009507513-2104JPN002156J

PATIENT
  Age: 46 Year
  Sex: Female
  Weight: 36 kg

DRUGS (2)
  1. BECLOMETASONE [BECLOMETASONE DIPROPIONATE] [Suspect]
     Active Substance: BECLOMETHASONE DIPROPIONATE
     Route: 065
  2. NOXAFIL [Suspect]
     Active Substance: POSACONAZOLE
     Indication: PROPHYLAXIS
     Dosage: 3 TABLETS ONCE DAILY
     Route: 048
     Dates: start: 20210308, end: 20210423

REACTIONS (4)
  - Acute graft versus host disease in intestine [Recovering/Resolving]
  - Adrenal insufficiency [Recovering/Resolving]
  - Acute graft versus host disease in skin [Recovering/Resolving]
  - Acute graft versus host disease in liver [Recovering/Resolving]

NARRATIVE: CASE EVENT DATE: 202103
